FAERS Safety Report 6783757-4 (Version None)
Quarter: 2010Q2

REPORT INFORMATION
  Report Type: 
  Country: None (occurrence: None)
  Receive Date: 20100622
  Receipt Date: 20100617
  Transmission Date: 20101027
  Serious: Yes (Hospitalization)
  Sender: FDA-Public Use
  Company Number: JP-BAYER-200914930BYL

PATIENT
  Age: 66 Year
  Sex: Male

DRUGS (19)
  1. ADALAT CC [Suspect]
     Indication: HYPERTENSION
     Route: 048
     Dates: start: 20050623, end: 20090224
  2. ADALAT CC [Interacting]
     Route: 048
     Dates: start: 20090225, end: 20090227
  3. ADALAT CC [Interacting]
     Route: 048
     Dates: start: 20090305
  4. ADALAT [Interacting]
     Indication: HYPERTENSION
     Route: 048
     Dates: start: 20090225, end: 20090227
  5. STOCRIN [Interacting]
     Indication: HIV INFECTION
     Route: 048
     Dates: start: 20090217, end: 20090226
  6. KALETRA [Interacting]
     Indication: HIV INFECTION
     Route: 048
     Dates: start: 20090227, end: 20090302
  7. VIDEX EC [Concomitant]
     Indication: HIV INFECTION
     Route: 048
     Dates: start: 20090217, end: 20090302
  8. EPIVIR [Concomitant]
     Indication: HIV INFECTION
     Route: 048
     Dates: start: 20090217, end: 20090302
  9. ASPIRIN [Concomitant]
     Indication: MYOCARDIAL ISCHAEMIA
     Route: 048
     Dates: start: 20050623
  10. PANALDINE [Concomitant]
     Indication: MYOCARDIAL ISCHAEMIA
     Route: 048
     Dates: start: 20050705
  11. SIGMART [Concomitant]
     Indication: MYOCARDIAL ISCHAEMIA
     Route: 048
     Dates: start: 20060608
  12. TAKEPRON [Concomitant]
     Indication: GASTRITIS
     Route: 048
     Dates: start: 20070918
  13. OLMETEC [Concomitant]
     Indication: HYPERTENSION
     Route: 048
     Dates: start: 20050608, end: 20090225
  14. LIPITOR [Concomitant]
     Indication: HYPERLIPIDAEMIA
     Route: 048
     Dates: start: 20060523
  15. GLUFAST [Concomitant]
     Indication: DIABETES MELLITUS
     Route: 048
     Dates: start: 20080520, end: 20090225
  16. NITRODERM [Concomitant]
     Route: 062
     Dates: start: 20090225
  17. ARTIST [Concomitant]
     Route: 048
     Dates: start: 20090224, end: 20090227
  18. ARTIST [Concomitant]
     Route: 048
     Dates: start: 20090308
  19. NITROGLYCERIN [Concomitant]
     Route: 017
     Dates: start: 20090309, end: 20090313

REACTIONS (2)
  - HYPERTENSION [None]
  - HYPOTENSION [None]
